FAERS Safety Report 23215188 (Version 2)
Quarter: 2024Q2

REPORT INFORMATION
  Report Type: Spontaneous
  Country: US (occurrence: US)
  Receive Date: 20231122
  Receipt Date: 20240508
  Transmission Date: 20240715
  Serious: No
  Sender: FDA-Public Use
  Company Number: US-BRISTOL-MYERS SQUIBB COMPANY-2023-168298

PATIENT
  Age: 66 Year
  Sex: Male

DRUGS (1)
  1. ONUREG [Suspect]
     Active Substance: AZACITIDINE
     Indication: Product used for unknown indication
     Dosage: FREQUENCY: ONCE DAILY ON DAYS 1-14 OF A 28 DAY CYCLE
     Route: 048

REACTIONS (2)
  - Nausea [Recovering/Resolving]
  - Pain [Unknown]
